FAERS Safety Report 4270239-7 (Version None)
Quarter: 2004Q1

REPORT INFORMATION
  Report Type: 
  Country: None (occurrence: None)
  Receive Date: 20040113
  Receipt Date: 20040113
  Transmission Date: 20041129
  Serious: Yes (Hospitalization)
  Sender: FDA-Public Use
  Company Number: None

PATIENT
  Age: 84 Year
  Sex: Male

DRUGS (7)
  1. LISINOPRIL [Suspect]
     Indication: HYPERTENSION
     Dosage: 10 MG QD
     Dates: start: 20010701
  2. PHENYTOIN [Concomitant]
  3. RISPERDAL [Concomitant]
  4. PHENOBARBITAL TAB [Concomitant]
  5. DIGOXIN [Concomitant]
  6. ALPRAZOLAM [Concomitant]
  7. REMERON [Concomitant]

REACTIONS (1)
  - HYPERKALAEMIA [None]
